FAERS Safety Report 9790856 (Version 1)
Quarter: 2013Q4

REPORT INFORMATION
  Report Type: Spontaneous
  Country: US (occurrence: US)
  Receive Date: 20131231
  Receipt Date: 20131231
  Transmission Date: 20140711
  Serious: No
  Sender: FDA-Public Use
  Company Number: US-ASTRAZENECA-2013SE78169

PATIENT
  Age: 70 Year
  Sex: Female
  Weight: 90.7 kg

DRUGS (4)
  1. PLENDIL [Suspect]
     Indication: BLOOD PRESSURE ABNORMAL
     Route: 048
     Dates: start: 1993
  2. NORVASC [Suspect]
     Indication: BLOOD PRESSURE ABNORMAL
  3. ATACAND [Concomitant]
     Indication: BLOOD PRESSURE ABNORMAL
     Dosage: 32 MGS DAILY
     Route: 048
  4. MULTIVITAMIN [Concomitant]
     Dosage: NOT REPORTED DAILY
     Route: 048

REACTIONS (2)
  - Feeling abnormal [Unknown]
  - Blood pressure fluctuation [Unknown]
